FAERS Safety Report 6826771-2 (Version None)
Quarter: 2010Q3

REPORT INFORMATION
  Report Type: 
  Country: None (occurrence: None)
  Receive Date: 20100709
  Receipt Date: 20100625
  Transmission Date: 20110219
  Serious: Yes (Life-Threatening, Hospitalization, Other)
  Sender: FDA-Public Use
  Company Number: US-ELI_LILLY_AND_COMPANY-US201006007540

PATIENT
  Sex: Female

DRUGS (13)
  1. FORTEO [Suspect]
     Indication: OSTEOPOROSIS
     Dates: start: 20090501
  2. CYMBALTA [Suspect]
     Indication: DEPRESSION
     Dosage: 60 MG, DAILY (1/D)
  3. LASIX [Concomitant]
  4. POTASSIUM [Concomitant]
  5. ABILIFY [Concomitant]
  6. KLONOPIN [Concomitant]
  7. KEPPRA [Concomitant]
  8. PEPCID [Concomitant]
  9. SYNTHROID [Concomitant]
  10. LORTAB [Concomitant]
  11. ZOCOR [Concomitant]
  12. SEROQUEL [Concomitant]
  13. SOMA [Concomitant]

REACTIONS (11)
  - BLOOD CALCIUM DECREASED [None]
  - BLOOD POTASSIUM DECREASED [None]
  - BLOOD PRESSURE DECREASED [None]
  - CONFUSIONAL STATE [None]
  - DIZZINESS [None]
  - FALL [None]
  - LOSS OF CONSCIOUSNESS [None]
  - MUSCLE SPASMS [None]
  - SOMNOLENCE [None]
  - VISION BLURRED [None]
  - VITAMIN D DECREASED [None]
